FAERS Safety Report 13677453 (Version 1)
Quarter: 2017Q2

REPORT INFORMATION
  Report Type: Spontaneous
  Country: US (occurrence: US)
  Receive Date: 20170622
  Receipt Date: 20170622
  Transmission Date: 20170830
  Serious: Yes (Other)
  Sender: FDA-Public Use
  Company Number: US-MYLANLABS-2017M1036894

PATIENT

DRUGS (2)
  1. PAMIDRONATE [Suspect]
     Active Substance: PAMIDRONATE DISODIUM
     Indication: PRODUCT USED FOR UNKNOWN INDICATION
     Dosage: 1 MG/KG; OVER 3 CONSECUTIVE DAYS AT 4-MONTH INTERVALS (2 DOSES)
     Route: 041
  2. PAMIDRONATE [Suspect]
     Active Substance: PAMIDRONATE DISODIUM
     Dosage: 1 MG/KG GIVEN AS A SINGLE INFUSION AT 3-MONTH INTERVALS
     Route: 041

REACTIONS (2)
  - Femur fracture [Recovered/Resolved]
  - Stress fracture [Recovered/Resolved]
